FAERS Safety Report 7901565-5 (Version None)
Quarter: 2011Q4

REPORT INFORMATION
  Report Type: 
  Country: None (occurrence: None)
  Receive Date: 20111108
  Receipt Date: 20111020
  Transmission Date: 20120403
  Serious: Yes (Hospitalization)
  Sender: FDA-Public Use
  Company Number: CA-JNJFOC-20111010246

PATIENT
  Sex: Female
  Weight: 84 kg

DRUGS (7)
  1. ZYTRAM [Concomitant]
     Dosage: 300 MG HS
  2. ENALAPRIL MALEATE [Concomitant]
  3. TRAZODONE HYDROCHLORIDE [Concomitant]
     Dosage: 1 HS
  4. NEXIUM [Concomitant]
  5. RHOVANE [Concomitant]
     Dosage: 1 1/2 HS
  6. REMICADE [Suspect]
     Indication: CROHN'S DISEASE
     Route: 042
  7. NOVO-FLUOXETINE [Concomitant]

REACTIONS (2)
  - STRESS [None]
  - CARDIAC DISORDER [None]
